FAERS Safety Report 8459873-8 (Version None)
Quarter: 2012Q2

REPORT INFORMATION
  Report Type: 
  Country: None (occurrence: None)
  Receive Date: 20120622
  Receipt Date: 20120618
  Transmission Date: 20120825
  Serious: Yes (Other)
  Sender: FDA-Public Use
  Company Number: PHHY2011CA83953

PATIENT
  Sex: Female

DRUGS (2)
  1. VITAMIN D [Concomitant]
     Dosage: 2000 IU, DAILY
     Route: 048
  2. ZOLEDRONOC ACID [Suspect]
     Indication: OSTEOPOROSIS
     Dosage: UNK UKN, ANNUAL
     Route: 042
     Dates: start: 20110810

REACTIONS (3)
  - SPINAL PAIN [None]
  - VITAMIN D DECREASED [None]
  - BONE PAIN [None]
